APPROVED DRUG PRODUCT: ONDANSETRON HYDROCHLORIDE PRESERVATIVE FREE
Active Ingredient: ONDANSETRON HYDROCHLORIDE
Strength: EQ 2MG BASE/ML
Dosage Form/Route: INJECTABLE;INJECTION
Application: A077548 | Product #001 | TE Code: AP
Applicant: HOSPIRA INC
Approved: Dec 26, 2006 | RLD: No | RS: No | Type: RX